FAERS Safety Report 21809378 (Version 1)
Quarter: 2023Q1

REPORT INFORMATION
  Report Type: Report from Study
  Country: US (occurrence: US)
  Receive Date: 20230103
  Receipt Date: 20230103
  Transmission Date: 20230418
  Serious: No
  Sender: FDA-Public Use
  Company Number: US-ABBVIE-4211613

PATIENT
  Sex: Female

DRUGS (8)
  1. SKYRIZI [Suspect]
     Active Substance: RISANKIZUMAB-RZAA
     Indication: Psoriasis
     Route: 058
     Dates: start: 20221024
  2. LISINOPRIL [Concomitant]
     Active Substance: LISINOPRIL
     Indication: Product used for unknown indication
  3. EXEMESTANE [Concomitant]
     Active Substance: EXEMESTANE
     Indication: Product used for unknown indication
  4. CEFDINIR [Concomitant]
     Active Substance: CEFDINIR
     Indication: Product used for unknown indication
  5. TRULICITY 0.75MG/0.5 PEN INJCTR [Concomitant]
     Indication: Product used for unknown indication
  6. SYNTHROID 75 IvICG TABLET [Concomitant]
     Indication: Product used for unknown indication
  7. HYDROCHLOROTHIAZIDE 12.5 MG CAPSULE [Concomitant]
     Indication: Product used for unknown indication
  8. PFIZER COVID-19 VACCINE (EUA) [Concomitant]
     Indication: COVID-19 immunisation
     Route: 030

REACTIONS (1)
  - Respiratory tract infection [Unknown]

NARRATIVE: CASE EVENT DATE: 20220101
